FAERS Safety Report 7261004-7 (Version None)
Quarter: 2011Q1

REPORT INFORMATION
  Report Type: 
  Country: None (occurrence: None)
  Receive Date: 20110130
  Receipt Date: 20101123
  Transmission Date: 20110831
  Serious: No
  Sender: FDA-Public Use
  Company Number: US-ABBOTT-10P-163-0687462-00

PATIENT
  Sex: Female
  Weight: 54.48 kg

DRUGS (12)
  1. XOPENEX [Concomitant]
     Indication: CYSTIC FIBROSIS
  2. HUMIRA [Suspect]
     Dates: end: 20100930
  3. METHOTREXATE [Concomitant]
     Indication: PRODUCT USED FOR UNKNOWN INDICATION
  4. CREON [Concomitant]
     Indication: PRODUCT USED FOR UNKNOWN INDICATION
  5. ADVAIR [Concomitant]
     Indication: CYSTIC FIBROSIS
     Dosage: 250/50
  6. PULMOZYME [Concomitant]
     Indication: PRODUCT USED FOR UNKNOWN INDICATION
  7. FOLIC ACID [Concomitant]
     Indication: PRODUCT USED FOR UNKNOWN INDICATION
  8. SINGULAIR [Concomitant]
     Indication: PRODUCT USED FOR UNKNOWN INDICATION
  9. HUMIRA [Suspect]
     Indication: RHEUMATOID ARTHRITIS
     Dates: start: 20090801, end: 20100930
  10. GLIPIZIDE [Concomitant]
     Indication: DIABETES MELLITUS
  11. GENTAMYCIN IN SALINE [Concomitant]
     Indication: NASAL POLYPS
     Dosage: RINSE IN NOSE
  12. NASACORT AQ [Concomitant]
     Indication: PRODUCT USED FOR UNKNOWN INDICATION

REACTIONS (4)
  - THROMBOSIS [None]
  - MENORRHAGIA [None]
  - ARTHRALGIA [None]
  - OEDEMA PERIPHERAL [None]
